FAERS Safety Report 17489288 (Version 1)
Quarter: 2020Q1

REPORT INFORMATION
  Report Type: Spontaneous
  Country: US (occurrence: US)
  Receive Date: 20200303
  Receipt Date: 20200303
  Transmission Date: 20200409
  Serious: No
  Sender: FDA-Public Use
  Company Number: US-ASTRAZENECA-2020SE04409

PATIENT
  Age: 932 Month
  Sex: Female

DRUGS (1)
  1. PULMICORT FLEXHALER [Suspect]
     Active Substance: BUDESONIDE
     Route: 055
     Dates: start: 2018

REACTIONS (3)
  - Retching [Unknown]
  - Intentional device misuse [Unknown]
  - Product physical issue [Unknown]

NARRATIVE: CASE EVENT DATE: 202001
